FAERS Safety Report 13405365 (Version 2)
Quarter: 2017Q2

REPORT INFORMATION
  Report Type: Spontaneous
  Country: US (occurrence: US)
  Receive Date: 20170405
  Receipt Date: 20170427
  Transmission Date: 20170830
  Serious: No
  Sender: FDA-Public Use
  Company Number: US-PFIZER INC-2017139948

PATIENT
  Age: 56 Year
  Sex: Female
  Weight: 57.61 kg

DRUGS (1)
  1. LYRICA [Suspect]
     Active Substance: PREGABALIN
     Indication: FIBROMYALGIA
     Dosage: 150 MG, 1X/DAY
     Dates: end: 2014

REACTIONS (5)
  - Condition aggravated [Not Recovered/Not Resolved]
  - Fall [Unknown]
  - General physical condition abnormal [Recovered/Resolved]
  - Fibromyalgia [Not Recovered/Not Resolved]
  - Malabsorption [Unknown]
